FAERS Safety Report 6029886-4 (Version None)
Quarter: 2009Q1

REPORT INFORMATION
  Report Type: 
  Country: None (occurrence: None)
  Receive Date: 20090105
  Receipt Date: 20090105
  Transmission Date: 20090719
  Serious: Yes (Death)
  Sender: FDA-Public Use
  Company Number: None

PATIENT
  Age: 78 Year
  Sex: Female
  Weight: 63.5036 kg

DRUGS (11)
  1. TARCEVA [Suspect]
     Indication: NON-SMALL CELL LUNG CANCER
     Dosage: 150 MG DAILY PO
     Route: 048
     Dates: start: 20081103, end: 20081217
  2. LIPITOR [Concomitant]
  3. ACTOS [Concomitant]
  4. JANUVIA [Concomitant]
  5. SINGULAIR [Concomitant]
  6. CITALOPRAM [Concomitant]
  7. SUCRALFATE [Concomitant]
  8. WARFARIN SODIUM [Concomitant]
  9. DIZTIAZ ER [Concomitant]
  10. KLOR-CON [Concomitant]
  11. DOXYCYCLINE [Concomitant]

REACTIONS (2)
  - GENERAL PHYSICAL HEALTH DETERIORATION [None]
  - NON-SMALL CELL LUNG CANCER STAGE IV [None]
